FAERS Safety Report 8875613 (Version 2)
Quarter: 2012Q4

REPORT INFORMATION
  Report Type: Report from Study
  Country: US (occurrence: US)
  Receive Date: 20121030
  Receipt Date: 20121213
  Transmission Date: 20130627
  Serious: Yes (Hospitalization)
  Sender: FDA-Public Use
  Company Number: US-ASTELLAS-2012US010476

PATIENT
  Age: 3 Year
  Sex: Male
  Weight: 15 kg

DRUGS (13)
  1. TACROLIMUS OINTMENT [Suspect]
     Indication: DERMATITIS ATOPIC
     Dosage: 0.03 %, bid
     Route: 061
     Dates: start: 201011
  2. DESONIDE [Concomitant]
     Indication: DERMATITIS ATOPIC
     Dosage: 0.05 %, tid
     Route: 061
     Dates: start: 20111223
  3. IMURAN                             /00001501/ [Concomitant]
     Indication: DERMATITIS ATOPIC
     Dosage: 50 mg, UID/QD
     Route: 048
     Dates: start: 20120224
  4. IMURAN                             /00001501/ [Concomitant]
     Dosage: 5 ml, UID/QD
     Route: 061
  5. FLUOCINONIDE [Concomitant]
     Indication: DERMATITIS ATOPIC
     Dosage: 0.05 %, tid
     Route: 061
     Dates: start: 20120210
  6. ATARAX                             /00058401/ [Concomitant]
     Indication: DERMATITIS ATOPIC
     Dosage: 15 mg, QHS
     Route: 048
     Dates: start: 2010
  7. ZYRTEC [Concomitant]
     Indication: ASTHMA
     Dosage: 5 mg, UID/QD
     Route: 048
     Dates: start: 2010
  8. SINGULAIR [Concomitant]
     Indication: ASTHMA
     Dosage: 4 mg, UID/QD
     Route: 048
     Dates: start: 2010
  9. BACTRIM [Concomitant]
     Indication: PRODUCT USED FOR UNKNOWN INDICATION
     Dosage: UNK UNK, bid
     Route: 048
     Dates: start: 201204
  10. BENADRYL                           /00000402/ [Concomitant]
     Indication: PRODUCT USED FOR UNKNOWN INDICATION
     Dosage: UNK UNK, Unknown/D
     Route: 048
  11. EPIPEN JR [Concomitant]
     Indication: HYPERSENSITIVITY
     Dosage: 0.3 ml, prn
     Route: 030
  12. MOTRIN [Concomitant]
     Indication: PRODUCT USED FOR UNKNOWN INDICATION
     Dosage: 100 mg/5 ml, Unknown/D
     Route: 048
  13. ELOCON [Concomitant]
     Indication: PRODUCT USED FOR UNKNOWN INDICATION
     Dosage: 0.1 %, bid
     Route: 061

REACTIONS (3)
  - Off label use [Unknown]
  - Staphylococcal infection [Recovered/Resolved]
  - Dermatitis atopic [Recovered/Resolved]
